FAERS Safety Report 7050273 (Version 2)
Quarter: 2013Q4

REPORT INFORMATION
  Report Type: Spontaneous
  Country: US (occurrence: None)
  Receive Date: 20090706
  Receipt Date: 20131226
  Transmission Date: 20140711
  Serious: Yes (Other)
  Sender: FDA-Public Use
  Company Number: 2009S1005201

PATIENT
  Age: 54 Year
  Sex: Female

DRUGS (8)
  1. SODIUM PHOSPHATE [Suspect]
     Indication: COLONOSCOPY
     Dosage: 90 ML;TOTAL; PO
     Route: 048
     Dates: start: 20061022, end: 20061022
  2. HYDROCHLORTHIAZIDE (HYDROCHLORTHIAZIDE) (25 MILLIGRAM) [Concomitant]
  3. SIMVASTATIN (SIMVASTATIN) (80 MILLIGRAMS) [Concomitant]
  4. BABY ASPIRIN (ACETYLSALICYLIC ACID) [Concomitant]
  5. DIOVAN (VALSARTAN) (320 MILLIGRAM) [Concomitant]
  6. LISINOPRIL (LISINOPRIL) (10  MILLIGRAM) [Concomitant]
  7. LANTUS (INSULIN GLARGINE) [Concomitant]
  8. APIDRA (INSULIN GLARGINE) [Concomitant]

REACTIONS (6)
  - Renal failure acute [None]
  - Nephrogenic anaemia [None]
  - Nausea [None]
  - Vomiting [None]
  - Tubulointerstitial nephritis [None]
  - Feeling abnormal [None]
